FAERS Safety Report 5095097-2 (Version None)
Quarter: 2006Q3

REPORT INFORMATION
  Report Type: 
  Country: None (occurrence: None)
  Receive Date: 20060901
  Receipt Date: 20060719
  Transmission Date: 20061208
  Serious: Yes (Life-Threatening, Disabling)
  Sender: FDA-Public Use
  Company Number: US-KINGPHARMUSA00001-K200600933

PATIENT
  Sex: Male

DRUGS (5)
  1. ALTACE [Suspect]
     Route: 048
     Dates: end: 20051117
  2. ALTACE [Suspect]
     Route: 048
     Dates: start: 20051118
  3. LIPITOR /NET/ [Concomitant]
     Dosage: 40 MG, UNK
  4. NEBILET [Concomitant]
     Dosage: 5 MG, UNK
  5. ASPIRIN [Concomitant]
     Dosage: 75 MG, UNK

REACTIONS (3)
  - CEREBROVASCULAR ACCIDENT [None]
  - DYSPHAGIA [None]
  - PERSONALITY CHANGE [None]
